FAERS Safety Report 20305507 (Version 2)
Quarter: 2022Q1

REPORT INFORMATION
  Report Type: Spontaneous
  Country: HU (occurrence: HU)
  Receive Date: 20220106
  Receipt Date: 20220121
  Transmission Date: 20220423
  Serious: Yes (Hospitalization, Other)
  Sender: FDA-Public Use
  Company Number: HU-TEVA-2021-HU-1995612

PATIENT
  Age: 67 Year
  Sex: Male

DRUGS (7)
  1. METHYLPREDNISOLONE [Suspect]
     Active Substance: METHYLPREDNISOLONE
     Indication: Immunosuppressant drug therapy
     Dosage: HIGH-DOSE; INDUCTION THERAPY FOR 3 DAYS
     Route: 065
  2. METHYLPREDNISOLONE [Suspect]
     Active Substance: METHYLPREDNISOLONE
     Dosage: 8 MILLIGRAM DAILY; MAINTENANCE THERAPY
     Route: 065
  3. TACROLIMUS [Suspect]
     Active Substance: TACROLIMUS
     Indication: Immunosuppressant drug therapy
     Dosage: MAINTENANCE THERAPY; MAINTAIN A TROUGH LEVEL OF 10-15 NG/ML IN THE FIRST 3 MONTHS, THEN 8-10 NG/ML
     Route: 065
  4. THYMOCYTE IMMUNE GLOBULIN NOS [Suspect]
     Active Substance: THYMOCYTE IMMUNE GLOBULIN NOS
     Indication: Immunosuppressant drug therapy
     Dosage: INDUCTION THERAPY FOR 3 DAYS
     Route: 065
  5. MYCOPHENOLIC ACID [Suspect]
     Active Substance: MYCOPHENOLIC ACID
     Indication: Immunosuppressant drug therapy
     Dosage: 1440 MILLIGRAM DAILY; MAINTENANCE THERAPY
     Route: 065
  6. MEROPENEM [Concomitant]
     Active Substance: MEROPENEM
     Indication: Antibiotic prophylaxis
     Dosage: 1000 MG THREE TIMES DAILY FOR 48 HOURS
     Route: 065
  7. VANCOMYCIN [Concomitant]
     Active Substance: VANCOMYCIN
     Indication: Antibiotic prophylaxis
     Dosage: 2000 MILLIGRAM DAILY; FOR 48 HOURS
     Route: 065

REACTIONS (4)
  - Aortic pseudoaneurysm [Recovered/Resolved]
  - Pseudomonas infection [Recovered/Resolved]
  - Infective aortitis [Recovered/Resolved]
  - Renal impairment [Recovered/Resolved]
